FAERS Safety Report 4494880-1 (Version None)
Quarter: 2004Q4

REPORT INFORMATION
  Report Type: 
  Country: None (occurrence: None)
  Receive Date: 20041103
  Receipt Date: 20041021
  Transmission Date: 20050328
  Serious: Yes (Hospitalization)
  Sender: FDA-Public Use
  Company Number: 2003011633

PATIENT
  Age: 74 Year
  Sex: Male
  Weight: 86.4 kg

DRUGS (17)
  1. ATORVASTATIN (ATORVASTATIN) [Suspect]
     Indication: CORONARY ARTERY DISEASE
     Dosage: 10 MG (1 IN 1 D), ORAL : 10 OR 80MG (1 IN 1 D), ORAL
     Route: 048
     Dates: start: 19990204, end: 19990405
  2. ATORVASTATIN (ATORVASTATIN) [Suspect]
     Indication: CORONARY ARTERY DISEASE
     Dosage: 10 MG (1 IN 1 D), ORAL : 10 OR 80MG (1 IN 1 D), ORAL
     Route: 048
     Dates: start: 19990406
  3. METOPROLOL [Concomitant]
  4. TERAZOSIN HCL [Concomitant]
  5. ACETYLSALICYLIC ACID [Concomitant]
  6. MOMETASONE [Concomitant]
  7. ASCORBIC ACID [Concomitant]
  8. TOCOPHEROL CONCENTRATE CAP [Concomitant]
  9. ERGOCALCIFEROL [Concomitant]
  10. FUROSEMIDE [Concomitant]
  11. ACETAMINOPHEN [Concomitant]
  12. TEMAZEPAM [Concomitant]
  13. FELODIPINE [Concomitant]
  14. RABEPRAZOLE SODIUM [Concomitant]
  15. SERTRALINE HCL [Concomitant]
  16. CELECOXIB [Concomitant]
  17. CYCLOBENZAPRINE HYDROCHLORIDE [Concomitant]

REACTIONS (2)
  - CHOLECYSTITIS [None]
  - CHOLELITHIASIS [None]
